FAERS Safety Report 14105121 (Version 2)
Quarter: 2017Q4

REPORT INFORMATION
  Report Type: Report from Study
  Country: DE (occurrence: DE)
  Receive Date: 20171018
  Receipt Date: 20171023
  Transmission Date: 20180321
  Serious: Yes (Hospitalization, Other)
  Sender: FDA-Public Use
  Company Number: DE-BRISTOL-MYERS SQUIBB COMPANY-BMS-2017-066633

PATIENT
  Age: 53 Year
  Sex: Male
  Weight: 121 kg

DRUGS (6)
  1. ARTELAC                            /00002701/ [Concomitant]
     Active Substance: ASPIRIN
     Indication: AUTOIMMUNE HEPATITIS
     Dosage: 128 MG, UNK
     Route: 042
     Dates: start: 20170706
  2. PREDNISOLONE. [Concomitant]
     Active Substance: PREDNISOLONE
     Indication: AUTOIMMUNE HEPATITIS
     Dosage: 130 MG, UNK
     Route: 048
     Dates: start: 20170707, end: 20170713
  3. PREDNISOLONE. [Concomitant]
     Active Substance: PREDNISOLONE
     Indication: PRODUCT USED FOR UNKNOWN INDICATION
     Dosage: 100 MG, UNK
     Route: 048
     Dates: start: 20170714
  4. ARTELAC                            /00002701/ [Concomitant]
     Active Substance: ASPIRIN
     Indication: DRY EYE
     Dosage: 1 DF, UNK
     Route: 031
     Dates: start: 20170210
  5. IPILIMUMAB [Suspect]
     Active Substance: IPILIMUMAB
     Indication: MALIGNANT MELANOMA
     Dosage: 1 DF, UNK
     Route: 065
     Dates: start: 20170105
  6. NIVOLUMAB [Suspect]
     Active Substance: NIVOLUMAB
     Indication: MALIGNANT MELANOMA
     Dosage: 1 DF, UNK
     Route: 065
     Dates: start: 20170105

REACTIONS (3)
  - Pneumonia klebsiella [Recovered/Resolved]
  - Bronchopulmonary aspergillosis [Not Recovered/Not Resolved]
  - Malignant neoplasm progression [Not Recovered/Not Resolved]

NARRATIVE: CASE EVENT DATE: 20170719
